FAERS Safety Report 16945718 (Version 9)
Quarter: 2021Q4

REPORT INFORMATION
  Report Type: Report from Study
  Country: RU (occurrence: RU)
  Receive Date: 20191022
  Receipt Date: 20211222
  Transmission Date: 20220303
  Serious: Yes (Life-Threatening, Hospitalization)
  Sender: FDA-Public Use
  Company Number: NVSC2019RU003432

PATIENT
  Age: 35 Year
  Sex: Female
  Weight: 55 kg

DRUGS (21)
  1. MIDOSTAURIN [Suspect]
     Active Substance: MIDOSTAURIN
     Indication: Acute myeloid leukaemia
     Dosage: UNK
     Route: 048
     Dates: start: 20190913
  2. DAUNORUBICIN [Suspect]
     Active Substance: DAUNORUBICIN
     Indication: Acute myeloid leukaemia
     Dosage: 60 MILLIGRAM PER SQUARE METER DAILY
     Route: 042
     Dates: start: 20190906
  3. CYTARABINE [Suspect]
     Active Substance: CYTARABINE
     Indication: Acute myeloid leukaemia
     Dosage: 200 MILLIGRAM PER SQUARE METER DAILY
     Route: 042
     Dates: start: 20190906
  4. ACYCLOVIR [Concomitant]
     Active Substance: ACYCLOVIR
     Indication: Antiviral prophylaxis
     Dosage: UNK
     Route: 065
     Dates: start: 20190903
  5. CALCIUM GLUCONATE [Concomitant]
     Active Substance: CALCIUM GLUCONATE
     Indication: Prophylaxis
     Dosage: UNK
     Route: 065
     Dates: start: 20190929, end: 20191021
  6. PIPERACILLIN SODIUM\TAZOBACTAM SODIUM [Concomitant]
     Active Substance: PIPERACILLIN SODIUM\TAZOBACTAM SODIUM
     Indication: Septic shock
     Dosage: UNK
     Route: 065
     Dates: start: 20190929, end: 20191021
  7. ACETAZOLAMIDE [Concomitant]
     Active Substance: ACETAZOLAMIDE
     Indication: Prophylaxis
     Dosage: UNK
     Route: 065
     Dates: start: 20190929, end: 20191021
  8. MENADIONE [Concomitant]
     Active Substance: MENADIONE
     Indication: Prophylaxis
     Dosage: UNK
     Route: 065
     Dates: start: 20191002, end: 20191021
  9. ANIDULAFUNGIN [Concomitant]
     Active Substance: ANIDULAFUNGIN
     Indication: Febrile neutropenia
     Dosage: UNK
     Route: 065
     Dates: start: 20190924, end: 20190926
  10. ANIDULAFUNGIN [Concomitant]
     Active Substance: ANIDULAFUNGIN
     Indication: Proctitis
  11. POTASSIUM CHLORIDE [Concomitant]
     Active Substance: POTASSIUM CHLORIDE
     Indication: Prophylaxis
     Dosage: UNK
     Route: 065
     Dates: start: 20190903
  12. TIGECYCLINE [Concomitant]
     Active Substance: TIGECYCLINE
     Indication: Febrile neutropenia
     Dosage: UNK
     Route: 065
     Dates: start: 20190914, end: 20190927
  13. FOSFOMYCIN [Concomitant]
     Active Substance: FOSFOMYCIN
     Indication: Febrile neutropenia
     Dosage: UNK
     Route: 065
     Dates: start: 20190922, end: 20190927
  14. KETOPROFEN [Concomitant]
     Active Substance: KETOPROFEN
     Indication: Febrile neutropenia
     Dosage: UNK
     Route: 065
     Dates: start: 20190907, end: 20191021
  15. KETOPROFEN [Concomitant]
     Active Substance: KETOPROFEN
     Indication: Proctitis
  16. THIAMINE [Concomitant]
     Active Substance: THIAMINE
     Indication: Septic shock
     Dosage: UNK
     Route: 065
     Dates: start: 20190927, end: 20191021
  17. OMEPRAZOLE [Concomitant]
     Active Substance: OMEPRAZOLE
     Indication: Prophylaxis against gastrointestinal ulcer
     Dosage: UNK
     Route: 065
     Dates: start: 20190903
  18. AZTREONAM [Concomitant]
     Active Substance: AZTREONAM
     Indication: Septic shock
     Dosage: UNK
     Route: 065
     Dates: start: 20190927, end: 20191022
  19. CEFTAZIDIME [Concomitant]
     Active Substance: CEFTAZIDIME
     Indication: Septic shock
     Dosage: UNK
     Route: 065
     Dates: start: 20190927, end: 20191022
  20. EGG WHITE [Concomitant]
     Active Substance: EGG WHITE
     Indication: Blood albumin decreased
     Dosage: UNK
     Route: 065
     Dates: start: 20190927, end: 20191021
  21. SODIUM BICARBONATE [Concomitant]
     Active Substance: SODIUM BICARBONATE
     Indication: Septic shock
     Dosage: UNK
     Route: 065
     Dates: start: 20190928, end: 20190929

REACTIONS (1)
  - Sepsis [Recovered/Resolved]

NARRATIVE: CASE EVENT DATE: 20191003
